FAERS Safety Report 15603030 (Version 1)
Quarter: 2018Q4

REPORT INFORMATION
  Report Type: Spontaneous
  Country: US (occurrence: US)
  Receive Date: 20181109
  Receipt Date: 20181109
  Transmission Date: 20190205
  Serious: No
  Sender: FDA-Public Use
  Company Number: US-MIDATECHPHARMA-2018-US-005375

PATIENT
  Age: 26 Year
  Sex: Male
  Weight: 92.99 kg

DRUGS (18)
  1. ASPIRIN. [Concomitant]
     Active Substance: ASPIRIN
  2. CLARITIN [Concomitant]
     Active Substance: LORATADINE
  3. ORAVIG [Suspect]
     Active Substance: MICONAZOLE
     Indication: CANDIDA INFECTION
     Dosage: 1 BUCCALLY DAILY TO GUMS
     Route: 050
     Dates: start: 2017
  4. XOPENEX NEBULIZER [Concomitant]
  5. METFORMIN [Concomitant]
     Active Substance: METFORMIN HYDROCHLORIDE
  6. KEPPRA [Concomitant]
     Active Substance: LEVETIRACETAM
  7. PRILOSEC [Concomitant]
     Active Substance: OMEPRAZOLE MAGNESIUM
  8. BACLOFEN. [Concomitant]
     Active Substance: BACLOFEN
  9. SIMETHICONE (DIMETHICONE) [Concomitant]
     Active Substance: DIMETHICONE
  10. FLUTICASONE NASAL [Concomitant]
     Active Substance: FLUTICASONE
  11. GLYBURIDE. [Concomitant]
     Active Substance: GLYBURIDE
  12. FERROUS SULFATEL [Concomitant]
  13. VITAMIN D3 [Concomitant]
     Active Substance: CHOLECALCIFEROL
  14. VITAMIN C [Concomitant]
     Active Substance: ASCORBIC ACID
  15. DILANTIN [Concomitant]
     Active Substance: PHENYTOIN
  16. BUDESONIDE. [Concomitant]
     Active Substance: BUDESONIDE
  17. METOPROLOL. [Concomitant]
     Active Substance: METOPROLOL
  18. FOLIC ACID. [Concomitant]
     Active Substance: FOLIC ACID

REACTIONS (3)
  - Off label use [Unknown]
  - Drug ineffective [Unknown]
  - Gingival discomfort [Recovered/Resolved]

NARRATIVE: CASE EVENT DATE: 2017
